FAERS Safety Report 4851263-X (Version None)
Quarter: 2005Q4

REPORT INFORMATION
  Report Type: 
  Country: None (occurrence: None)
  Receive Date: 20051130
  Receipt Date: 20051017
  Transmission Date: 20060501
  Serious: Yes (Hospitalization)
  Sender: FDA-Public Use
  Company Number: FABR-11282

PATIENT
  Age: 27 Year
  Sex: Male
  Weight: 60 kg

DRUGS (4)
  1. FABRAZYME [Suspect]
     Indication: FABRY'S DISEASE
     Dosage: 60 MG Q2WKS  IV
     Route: 042
     Dates: start: 20050226, end: 20051008
  2. D-CHLORPHENIRAMINE MALEATE [Concomitant]
  3. PREDNISOLONE [Concomitant]
  4. CARBAMAZEPINE [Concomitant]

REACTIONS (1)
  - PYREXIA [None]
